FAERS Safety Report 14588442 (Version 2)
Quarter: 2018Q1

REPORT INFORMATION
  Report Type: Spontaneous
  Country: US (occurrence: US)
  Receive Date: 20180301
  Receipt Date: 20180323
  Transmission Date: 20180509
  Serious: Yes (Death, Other)
  Sender: FDA-Public Use
  Company Number: US-TEVA-2018-US-864525

PATIENT
  Age: 73 Year
  Sex: Male

DRUGS (2)
  1. IMMUNOGLOBULIN IV [Concomitant]
     Active Substance: HUMAN IMMUNOGLOBULIN G
     Indication: CHRONIC INFLAMMATORY DEMYELINATING POLYRADICULONEUROPATHY
     Dosage: MONTHLY
     Route: 042
  2. PREDNISONE. [Suspect]
     Active Substance: PREDNISONE
     Indication: CHRONIC INFLAMMATORY DEMYELINATING POLYRADICULONEUROPATHY
     Dosage: 25MG DAILY

REACTIONS (9)
  - Renal failure [Unknown]
  - Hepatitis C [Fatal]
  - Acute hepatic failure [Fatal]
  - Metabolic acidosis [Unknown]
  - Hepatitis cholestatic [Fatal]
  - Hypoxia [Unknown]
  - Hypotension [Unknown]
  - Hepatic encephalopathy [Unknown]
  - Sepsis [Unknown]
